FAERS Safety Report 16533093 (Version 1)
Quarter: 2019Q3

REPORT INFORMATION
  Report Type: Spontaneous
  Country: CN (occurrence: CN)
  Receive Date: 20190704
  Receipt Date: 20190704
  Transmission Date: 20191004
  Serious: Yes (Hospitalization)
  Sender: FDA-Public Use
  Company Number: CN-PFIZER INC-2019281228

PATIENT
  Age: 38 Year
  Sex: Female
  Weight: 55 kg

DRUGS (3)
  1. ENDOXAN [CYCLOPHOSPHAMIDE] [Suspect]
     Active Substance: CYCLOPHOSPHAMIDE
     Indication: BREAST CANCER
     Dosage: 0.950000 G, 1X/DAY
     Route: 041
     Dates: start: 20190313, end: 20190313
  2. AO NUO XIAN [Suspect]
     Active Substance: DEXRAZOXANE
     Indication: BREAST CANCER
     Dosage: 1500.000 MG, 1X/DAY
     Route: 041
     Dates: start: 20190313, end: 20190313
  3. PHARMORUBICIN [Suspect]
     Active Substance: EPIRUBICIN
     Indication: BREAST CANCER
     Dosage: 140.000 MG, 1X/DAY
     Route: 041
     Dates: start: 20190313, end: 20190313

REACTIONS (1)
  - Hepatic function abnormal [Recovering/Resolving]

NARRATIVE: CASE EVENT DATE: 20190320
